FAERS Safety Report 15561815 (Version 1)
Quarter: 2018Q4

REPORT INFORMATION
  Report Type: Spontaneous
  Country: US (occurrence: US)
  Receive Date: 20181029
  Receipt Date: 20181029
  Transmission Date: 20190205
  Serious: Yes (Other)
  Sender: FDA-Public Use
  Company Number: None

PATIENT
  Age: 62 Year
  Sex: Male
  Weight: 85.5 kg

DRUGS (3)
  1. VITAMIN D [Concomitant]
     Active Substance: CHOLECALCIFEROL
  2. DOXYCYCLINE MONO 100 MG CAP PAR [Suspect]
     Active Substance: DOXYCYCLINE
     Indication: INFECTION PROPHYLAXIS
     Dosage: ?          QUANTITY:14 CAPSULE(S);?
     Route: 048
     Dates: start: 20181019, end: 20181024
  3. FISH OIL [Concomitant]
     Active Substance: FISH OIL

REACTIONS (1)
  - Vision blurred [None]

NARRATIVE: CASE EVENT DATE: 20181024
